FAERS Safety Report 7158262-6 (Version None)
Quarter: 2010Q4

REPORT INFORMATION
  Report Type: 
  Country: None (occurrence: None)
  Receive Date: 20101214
  Receipt Date: 20100402
  Transmission Date: 20110411
  Serious: No
  Sender: FDA-Public Use
  Company Number: US-ASTRAZENECA-2010SE14574

PATIENT
  Age: 25216 Day
  Sex: Female
  Weight: 54.4 kg

DRUGS (2)
  1. CRESTOR [Suspect]
     Indication: BLOOD CHOLESTEROL INCREASED
     Route: 048
     Dates: start: 20100329, end: 20100401
  2. TOPROL-XL [Concomitant]
     Indication: ANGINA PECTORIS

REACTIONS (1)
  - DYSPNOEA [None]
